FAERS Safety Report 15048243 (Version 8)
Quarter: 2018Q3

REPORT INFORMATION
  Report Type: Report from Study
  Country: ES (occurrence: ES)
  Receive Date: 20180622
  Receipt Date: 20180925
  Transmission Date: 20181010
  Serious: Yes (Death, Hospitalization)
  Sender: FDA-Public Use
  Company Number: ES-ROCHE-2123276

PATIENT
  Age: 65 Year
  Sex: Male
  Weight: 81.1 kg

DRUGS (5)
  1. ALLOPURINOL. [Concomitant]
     Active Substance: ALLOPURINOL
     Indication: GOUT
     Route: 065
     Dates: start: 20160804
  2. PARACETAMOL [Concomitant]
     Active Substance: ACETAMINOPHEN
     Indication: BACK PAIN
     Route: 065
     Dates: start: 20170613
  3. BEVACIZUMAB. [Suspect]
     Active Substance: BEVACIZUMAB
     Indication: NON-SMALL CELL LUNG CANCER STAGE IV
     Dosage: MOST RECENT DOSE OF BEVACIZUMAB PRIOR TO ADVERSE EVENT (AE) OF AST INCREASED WAS 06/MAY/2016?MOST RE
     Route: 042
     Dates: start: 20160506
  4. PACLITAXEL. [Suspect]
     Active Substance: PACLITAXEL
     Indication: NON-SMALL CELL LUNG CANCER STAGE IV
     Dosage: DATE OF MOST RECENT DOSE (372 MG) OF PACLITAXEL PRIOR TO ADVERSE EVENT ONSET 25/AUG/2016
     Route: 042
     Dates: start: 20160506
  5. CARBOPLATIN. [Suspect]
     Active Substance: CARBOPLATIN
     Indication: NON-SMALL CELL LUNG CANCER STAGE IV
     Dosage: DOSE AS PER PROTOCOL: AREA UNDER THE CONCENTRATION?TIME CURVE (AUC) 6 MILLIGRAMS PER MILLILITER PER
     Route: 042
     Dates: start: 20160506

REACTIONS (3)
  - Aspartate aminotransferase increased [Not Recovered/Not Resolved]
  - Alanine aminotransferase increased [Not Recovered/Not Resolved]
  - Cholangitis [Fatal]

NARRATIVE: CASE EVENT DATE: 20180405
